FAERS Safety Report 26098899 (Version 1)
Quarter: 2025Q4

REPORT INFORMATION
  Report Type: Spontaneous
  Country: US (occurrence: US)
  Receive Date: 20251127
  Receipt Date: 20251127
  Transmission Date: 20260118
  Serious: No
  Sender: ABBVIE
  Company Number: US-ABBVIE-6556751

PATIENT

DRUGS (1)
  1. ARMOUR THYROID [Suspect]
     Active Substance: THYROID, PORCINE
     Indication: Product used for unknown indication
     Dosage: 15MG
     Route: 048
     Dates: start: 2025, end: 2025

REACTIONS (6)
  - Weight increased [Unknown]
  - Drug ineffective [Unknown]
  - Goitre [Unknown]
  - Product size issue [Unknown]
  - Lethargy [Unknown]
  - Product shape issue [Unknown]
